FAERS Safety Report 13371514 (Version 1)
Quarter: 2017Q1

REPORT INFORMATION
  Report Type: Spontaneous
  Country: FR (occurrence: FR)
  Receive Date: 20170324
  Receipt Date: 20170324
  Transmission Date: 20170429
  Serious: Yes (Other)
  Sender: FDA-Public Use
  Company Number: FR-BAUSCH-BL-2017-007756

PATIENT
  Age: 36 Year
  Sex: Male

DRUGS (15)
  1. TOPALGIC [Concomitant]
     Active Substance: TRAMADOL
     Indication: PRODUCT USED FOR UNKNOWN INDICATION
  2. POLARAMINE [Concomitant]
     Active Substance: DEXCHLORPHENIRAMINE MALEATE
     Indication: PRODUCT USED FOR UNKNOWN INDICATION
  3. ENDOXAN [Concomitant]
     Active Substance: CYCLOPHOSPHAMIDE
     Indication: PRODUCT USED FOR UNKNOWN INDICATION
     Dates: start: 20160919
  4. CRESEMBA [Suspect]
     Active Substance: ISAVUCONAZONIUM SULFATE
     Indication: INFECTION PROPHYLAXIS
     Route: 065
     Dates: start: 20170206
  5. FORTUM [Suspect]
     Active Substance: CEFTAZIDIME
     Indication: INFECTION PROPHYLAXIS
     Route: 042
     Dates: start: 20170213, end: 20170228
  6. ARACYTINE [Concomitant]
     Active Substance: CYTARABINE
     Indication: PRODUCT USED FOR UNKNOWN INDICATION
     Dates: start: 20160808
  7. DEFITELIO [Suspect]
     Active Substance: DEFIBROTIDE SODIUM
     Indication: THROMBOSIS
     Route: 042
     Dates: start: 20170213
  8. METHOTREXATE. [Concomitant]
     Active Substance: METHOTREXATE
     Indication: PRODUCT USED FOR UNKNOWN INDICATION
     Dates: start: 20160905
  9. TIENAM [Suspect]
     Active Substance: CILASTATIN SODIUM\IMIPENEM
     Indication: INFECTION PROPHYLAXIS
     Route: 042
     Dates: start: 20170211, end: 20170218
  10. TIORFAN [Concomitant]
     Active Substance: RACECADOTRIL
     Indication: PRODUCT USED FOR UNKNOWN INDICATION
  11. METRONIDAZOLE. [Suspect]
     Active Substance: METRONIDAZOLE
     Indication: INFECTION PROPHYLAXIS
     Route: 042
     Dates: start: 20170211
  12. INEXIUM [Concomitant]
     Active Substance: ESOMEPRAZOLE
     Indication: PRODUCT USED FOR UNKNOWN INDICATION
     Route: 065
  13. SMECTA [Concomitant]
     Active Substance: MONTMORILLONITE
     Indication: PRODUCT USED FOR UNKNOWN INDICATION
  14. ALPRAZOLAM. [Concomitant]
     Active Substance: ALPRAZOLAM
     Indication: PRODUCT USED FOR UNKNOWN INDICATION
  15. THYMOGLOBULINE [Suspect]
     Active Substance: LAPINE T-LYMPHOCYTE IMMUNE GLOBULIN
     Indication: BONE MARROW TRANSPLANT
     Route: 042
     Dates: start: 20170213, end: 20170214

REACTIONS (4)
  - Hyperthermia [Recovered/Resolved]
  - Anaphylactic shock [Recovered/Resolved]
  - Tachypnoea [Recovered/Resolved]
  - Tachycardia [Recovered/Resolved]

NARRATIVE: CASE EVENT DATE: 20170213
